FAERS Safety Report 7429336-7 (Version None)
Quarter: 2011Q2

REPORT INFORMATION
  Report Type: 
  Country: None (occurrence: None)
  Receive Date: 20110418
  Receipt Date: 20110418
  Transmission Date: 20111010
  Serious: Yes (Other)
  Sender: FDA-Public Use
  Company Number: None

PATIENT
  Sex: Male
  Weight: 114.3065 kg

DRUGS (1)
  1. ADVAIR DISKUS 250/50 [Suspect]
     Indication: CHRONIC OBSTRUCTIVE PULMONARY DISEASE
     Dosage: 1 PUFF BID INHALED LAST 4-6 MONTHS
     Route: 055

REACTIONS (4)
  - DYSPNOEA [None]
  - DEVICE BREAKAGE [None]
  - DEVICE MALFUNCTION [None]
  - WHEEZING [None]
